FAERS Safety Report 8008850-X (Version None)
Quarter: 2011Q4

REPORT INFORMATION
  Report Type: 
  Country: None (occurrence: None)
  Receive Date: 20111221
  Receipt Date: 20111212
  Transmission Date: 20120403
  Serious: Yes (Disabling, Other)
  Sender: FDA-Public Use
  Company Number: NSR_00306_2011

PATIENT
  Age: 22 Year
  Sex: Male

DRUGS (4)
  1. PROVIGIL [Suspect]
     Indication: CATAPLEXY
     Dosage: (DF)
  2. PROVIGIL [Suspect]
     Indication: NARCOLEPSY
     Dosage: (DF)
  3. VENLAFAXINE [Suspect]
     Indication: CATAPLEXY
  4. VENLAFAXINE [Suspect]
     Indication: NARCOLEPSY

REACTIONS (10)
  - ABNORMAL BEHAVIOUR [None]
  - MANIA [None]
  - ECONOMIC PROBLEM [None]
  - PERSONALITY CHANGE [None]
  - GRANDIOSITY [None]
  - SEXUALLY INAPPROPRIATE BEHAVIOUR [None]
  - ENERGY INCREASED [None]
  - PRESSURE OF SPEECH [None]
  - GAMBLING [None]
  - PSYCHOMOTOR HYPERACTIVITY [None]
